FAERS Safety Report 6842334-7 (Version None)
Quarter: 2010Q3

REPORT INFORMATION
  Report Type: 
  Country: None (occurrence: None)
  Receive Date: 20100714
  Receipt Date: 20070725
  Transmission Date: 20110219
  Serious: No
  Sender: FDA-Public Use
  Company Number: US-PFIZER INC-2007063122

PATIENT
  Sex: Female
  Weight: 73.5 kg

DRUGS (6)
  1. CHANTIX [Suspect]
     Indication: SMOKING CESSATION THERAPY
     Dates: start: 20070724
  2. ACTONEL [Concomitant]
  3. VITAMINS [Concomitant]
  4. HERBAL PREPARATION [Concomitant]
  5. XANAX [Concomitant]
  6. IBUPROFEN [Concomitant]

REACTIONS (4)
  - ANGER [None]
  - CRYING [None]
  - EMOTIONAL DISORDER [None]
  - FEELING ABNORMAL [None]
